FAERS Safety Report 4981161-2 (Version None)
Quarter: 2006Q1

REPORT INFORMATION
  Report Type: 
  Country: None (occurrence: None)
  Receive Date: 20060227
  Receipt Date: 20050629
  Transmission Date: 20060701
  Serious: Yes (Hospitalization)
  Sender: FDA-Public Use
  Company Number: WAES 0506USA04302

PATIENT
  Sex: Male

DRUGS (2)
  1. ZOCOR [Suspect]
     Dosage: PO
     Route: 048
  2. CYCLOSPORINE [Suspect]

REACTIONS (2)
  - DRUG INTERACTION [None]
  - RHABDOMYOLYSIS [None]
